FAERS Safety Report 4597634-0 (Version None)
Quarter: 2005Q1

REPORT INFORMATION
  Report Type: 
  Country: None (occurrence: None)
  Receive Date: 20050303
  Receipt Date: 20050225
  Transmission Date: 20050727
  Serious: Yes (Hospitalization)
  Sender: FDA-Public Use
  Company Number: CHROB-C-20050001

PATIENT
  Age: 82 Year
  Sex: Female

DRUGS (7)
  1. NAVELBINE [Suspect]
     Dosage: 30MG CYCLIC
     Route: 042
     Dates: start: 20041116, end: 20050111
  2. CAPECITABINE [Suspect]
     Dosage: 2300MG CYCLIC
     Route: 048
     Dates: start: 20041116, end: 20050118
  3. METOCLOPRAMIDE [Concomitant]
  4. TRAMADOL HYDROCHLORIDE [Concomitant]
  5. LOPERAMIDE HCL [Concomitant]
  6. OXAZEPAM [Concomitant]
  7. ACETYLSALICYLIC ACID [Concomitant]

REACTIONS (5)
  - CEREBROVASCULAR DISORDER [None]
  - COGNITIVE DISORDER [None]
  - CONDITION AGGRAVATED [None]
  - FLANK PAIN [None]
  - GENERAL PHYSICAL HEALTH DETERIORATION [None]
